FAERS Safety Report 20065009 (Version 1)
Quarter: 2021Q4

REPORT INFORMATION
  Report Type: Report from Study
  Country: US (occurrence: US)
  Receive Date: 20211113
  Receipt Date: 20211113
  Transmission Date: 20220303
  Serious: Yes (Hospitalization, Other)
  Sender: FDA-Public Use
  Company Number: US-ABBVIE-21K-163-4155305-00

PATIENT
  Sex: Female

DRUGS (1)
  1. SKYRIZI [Suspect]
     Active Substance: RISANKIZUMAB-RZAA
     Indication: Psoriasis
     Route: 058
     Dates: start: 202103

REACTIONS (5)
  - Surgery [Unknown]
  - Nasopharyngitis [Unknown]
  - Skin discolouration [Unknown]
  - Pain in extremity [Unknown]
  - Swelling [Unknown]

NARRATIVE: CASE EVENT DATE: 20210101
